FAERS Safety Report 9724117 (Version 3)
Quarter: 2014Q1

REPORT INFORMATION
  Report Type: Spontaneous
  Country: US (occurrence: US)
  Receive Date: 20131202
  Receipt Date: 20140103
  Transmission Date: 20141002
  Serious: Yes (Other)
  Sender: FDA-Public Use
  Company Number: US-AMGEN-USASP2013079403

PATIENT
  Age: 53 Year
  Sex: Female
  Weight: 77.1 kg

DRUGS (5)
  1. ENBREL [Suspect]
     Indication: PSORIATIC ARTHROPATHY
     Dosage: 50 MG, QWK
     Route: 058
     Dates: start: 200409, end: 201310
  2. ENBREL [Suspect]
     Indication: PSORIASIS
  3. HUMIRA [Concomitant]
     Dosage: 50 MG, QWK
     Dates: start: 201105, end: 201112
  4. FLONASE                            /00908302/ [Concomitant]
     Indication: RHINITIS ALLERGIC
     Dosage: UNK UNK, QD
     Route: 045
  5. ADVAIR [Concomitant]
     Indication: ASTHMA
     Dosage: UNK, INHALATION

REACTIONS (4)
  - Psoriatic arthropathy [Unknown]
  - Large intestine polyp [Recovering/Resolving]
  - Drug ineffective [Unknown]
  - Injection site reaction [Unknown]
